FAERS Safety Report 18423993 (Version 2)
Quarter: 2020Q4

REPORT INFORMATION
  Report Type: Report from Study
  Country: US (occurrence: US)
  Receive Date: 20201025
  Receipt Date: 20201028
  Transmission Date: 20210114
  Serious: No
  Sender: FDA-Public Use
  Company Number: US-AMGEN-USASL2020169404

PATIENT
  Age: 73 Year
  Sex: Female
  Weight: 111 kg

DRUGS (2)
  1. NEULASTA [Suspect]
     Active Substance: PEGFILGRASTIM
     Dosage: 6 MILLIGRAM, QD
     Route: 058
  2. NEULASTA [Suspect]
     Active Substance: PEGFILGRASTIM
     Indication: PROPHYLAXIS
     Dosage: 6 MILLIGRAM, QD
     Route: 058

REACTIONS (1)
  - Device adhesion issue [Unknown]

NARRATIVE: CASE EVENT DATE: 20201007
